FAERS Safety Report 11537636 (Version 3)
Quarter: 2015Q4

REPORT INFORMATION
  Report Type: Spontaneous
  Country: RS (occurrence: RS)
  Receive Date: 20150922
  Receipt Date: 20151013
  Transmission Date: 20160304
  Serious: Yes (Death, Other)
  Sender: FDA-Public Use
  Company Number: RS-BAXTER-2015BAX051405

PATIENT
  Age: 25 Year
  Sex: Male

DRUGS (3)
  1. DOXORUBICIN [Suspect]
     Active Substance: DOXORUBICIN
     Indication: RETROPERITONEAL LYMPHADENOPATHY
     Dosage: 4 CYCLES ALONE
     Route: 065
  2. HOLOXAN  1 G [Suspect]
     Active Substance: IFOSFAMIDE
     Indication: RETROPERITONEAL LYMPHADENOPATHY
     Dosage: 4 CYCLES
     Route: 065
  3. DOXORUBICIN [Suspect]
     Active Substance: DOXORUBICIN
     Dosage: 4 CYCLES WITH IFOSPHAMIDE
     Route: 065

REACTIONS (5)
  - Death [Fatal]
  - Hepatic enzyme increased [Unknown]
  - Metastases to lymph nodes [Unknown]
  - Disease progression [Unknown]
  - Renal impairment [Unknown]
